FAERS Safety Report 9840519 (Version 1)
Quarter: 2014Q1

REPORT INFORMATION
  Report Type: Spontaneous
  Country: US (occurrence: US)
  Receive Date: 20140124
  Receipt Date: 20140124
  Transmission Date: 20141002
  Serious: No
  Sender: FDA-Public Use
  Company Number: US-PFIZER INC-2014019545

PATIENT
  Age: 66 Year
  Sex: Female

DRUGS (7)
  1. CELEBREX [Suspect]
     Dosage: UNK
  2. MORPHINE SULFATE [Suspect]
     Dosage: UNK
  3. FELDENE [Suspect]
     Dosage: UNK
  4. ASPIRIN [Suspect]
     Dosage: UNK
  5. VOLTAREN [Suspect]
     Dosage: UNK
  6. HYDROCODONE [Suspect]
     Dosage: UNK
  7. INDOCIN [Suspect]
     Dosage: UNK

REACTIONS (1)
  - Drug hypersensitivity [Unknown]
